FAERS Safety Report 23300489 (Version 1)
Quarter: 2023Q4

REPORT INFORMATION
  Report Type: Report from Study
  Country: US (occurrence: US)
  Receive Date: 20231215
  Receipt Date: 20231215
  Transmission Date: 20240110
  Serious: Yes (Hospitalization, Other)
  Sender: FDA-Public Use
  Company Number: US-ABBVIE-4700420

PATIENT
  Age: 66 Year
  Sex: Male
  Weight: 99.79 kg

DRUGS (3)
  1. HUMIRA [Suspect]
     Active Substance: ADALIMUMAB
     Indication: Rheumatoid arthritis
     Dosage: CITRATE FREE?STRENGTH:40MG
     Route: 058
     Dates: start: 20230509
  2. HUMIRA [Suspect]
     Active Substance: ADALIMUMAB
     Dosage: CITRATE FREE?STRENGTH:40MG
     Route: 058
     Dates: start: 20200416, end: 202302
  3. METHOTREXATE [Concomitant]
     Active Substance: METHOTREXATE
     Indication: Product used for unknown indication
     Dates: end: 20230301

REACTIONS (9)
  - Back injury [Recovered/Resolved]
  - Fall [Recovered/Resolved]
  - Spinal operation [Recovered/Resolved]
  - Balance disorder [Unknown]
  - Discomfort [Recovering/Resolving]
  - Mobility decreased [Recovering/Resolving]
  - Intervertebral disc protrusion [Recovered/Resolved]
  - Diabetes mellitus [Unknown]
  - Back pain [Unknown]

NARRATIVE: CASE EVENT DATE: 20220901
